FAERS Safety Report 4822308-8 (Version None)
Quarter: 2005Q4

REPORT INFORMATION
  Report Type: 
  Country: None (occurrence: None)
  Receive Date: 20051103
  Receipt Date: 20051013
  Transmission Date: 20060501
  Serious: Yes (Death, Other)
  Sender: FDA-Public Use
  Company Number: USA0509108451

PATIENT
  Age: 86 Year
  Sex: Female
  Weight: 56 kg

DRUGS (1)
  1. EVISTA [Suspect]

REACTIONS (3)
  - CONDITION AGGRAVATED [None]
  - EMPHYSEMA [None]
  - PNEUMONIA [None]
